APPROVED DRUG PRODUCT: SOFDRA
Active Ingredient: SOFPIRONIUM BROMIDE
Strength: EQ 12.45% BASE (EQ 72MG BASE/ACTUATION)
Dosage Form/Route: GEL, METERED;TOPICAL
Application: N217347 | Product #001
Applicant: BOTANIX SB INC
Approved: Jun 18, 2024 | RLD: Yes | RS: Yes | Type: RX

PATENTS:
Patent 12357609 | Expires: May 22, 2034
Patent 12156865 | Expires: May 22, 2034
Patent 12398102 | Expires: May 22, 2034
Patent 11123325 | Expires: Jul 20, 2037
Patent 11084788 | Expires: May 22, 2034
Patent 11052067 | Expires: May 22, 2034
Patent 11034652 | Expires: May 22, 2034
Patent 11026919 | Expires: May 22, 2034
Patent 10961191 | Expires: May 22, 2034
Patent 10959983 | Expires: May 22, 2034
Patent 8628759 | Expires: Nov 13, 2026
Patent 10952990 | Expires: May 22, 2034
Patent 10947192 | Expires: May 22, 2034
Patent 10383846 | Expires: Mar 14, 2034
Patent 9492429 | Expires: Mar 14, 2034
Patent 9895350 | Expires: Mar 14, 2034
Patent 9220707 | Expires: Mar 14, 2034
Patent 8147809 | Expires: Mar 26, 2027
Patent 11584715 | Expires: May 22, 2040
Patent 11566000 | Expires: May 22, 2040

EXCLUSIVITY:
Code: NCE | Date: Jun 20, 2029